FAERS Safety Report 19462232 (Version 1)
Quarter: 2021Q2

REPORT INFORMATION
  Report Type: Spontaneous
  Country: IE (occurrence: IE)
  Receive Date: 20210625
  Receipt Date: 20210625
  Transmission Date: 20210717
  Serious: Yes (Hospitalization)
  Sender: FDA-Public Use
  Company Number: IE-UNIQUE PHARMACEUTICAL LABORATORIES-20210600049

PATIENT

DRUGS (7)
  1. PREDNISOLONE. [Concomitant]
     Active Substance: PREDNISOLONE
     Dosage: 60 MG DAILY
  2. AMBISOME [Suspect]
     Active Substance: AMPHOTERICIN B
     Dosage: 4 MG/KG 24 HOURLY
  3. ISAVUCONAZOLE [Concomitant]
     Active Substance: ISAVUCONAZOLE
     Dosage: 200 MILLIGRAM, BID
  4. ISAVUCONAZOLE [Concomitant]
     Active Substance: ISAVUCONAZOLE
     Dosage: 200 MG ONCE DAILY
  5. FLUCYTOSINE. [Concomitant]
     Active Substance: FLUCYTOSINE
     Dosage: 25 MG/KG 6 HOURLY
  6. FLUCONAZOLE UNSPECIFIED [Suspect]
     Active Substance: FLUCONAZOLE
     Dosage: 1200 MG DAILY
  7. FLUCONAZOLE UNSPECIFIED [Suspect]
     Active Substance: FLUCONAZOLE
     Dosage: 800 MG OD ON DAY 45

REACTIONS (6)
  - Mucosal inflammation [Unknown]
  - Vomiting [Unknown]
  - Toxicity to various agents [Unknown]
  - Acute kidney injury [Unknown]
  - Nausea [Unknown]
  - Alopecia [Unknown]
